FAERS Safety Report 16101384 (Version 2)
Quarter: 2019Q1

REPORT INFORMATION
  Report Type: Spontaneous
  Country: US (occurrence: US)
  Receive Date: 20190321
  Receipt Date: 20190327
  Transmission Date: 20190418
  Serious: Yes (Other)
  Sender: FDA-Public Use
  Company Number: US-PFIZER INC-2019120901

PATIENT
  Age: 3 Year
  Sex: Female

DRUGS (9)
  1. DACARBAZINE. [Suspect]
     Active Substance: DACARBAZINE
     Indication: ALVEOLAR RHABDOMYOSARCOMA
     Dosage: 250 MG/M2, CYCLIC (ON DAYS 1 TO 5 AT THREE-WEEK INTERVALS)
     Dates: start: 1974
  2. VINCRISTINE SULFATE. [Suspect]
     Active Substance: VINCRISTINE SULFATE
     Indication: ALVEOLAR RHABDOMYOSARCOMA
     Dosage: 2 MG/M2, CYCLIC (WEEKLY)
     Dates: start: 1973, end: 1974
  3. DACTINOMYCIN [Suspect]
     Active Substance: DACTINOMYCIN
     Indication: ALVEOLAR RHABDOMYOSARCOMA
     Dosage: 15 UG/KG, CYCLIC (/DAY)
     Dates: start: 1973
  4. CYTOXAN [Suspect]
     Active Substance: CYCLOPHOSPHAMIDE
     Indication: ALVEOLAR RHABDOMYOSARCOMA
     Dosage: 2.5 MG/KG, CYCLIC (/DAY)
     Route: 048
     Dates: start: 197308, end: 197401
  5. CYTOXAN [Suspect]
     Active Substance: CYCLOPHOSPHAMIDE
     Dosage: 500 MG/M2, CYCLIC (SINGLE DOSE EVERY SIX WEEKS)
     Route: 042
     Dates: start: 197408
  6. VINCRISTINE SULFATE. [Suspect]
     Active Substance: VINCRISTINE SULFATE
     Dosage: 2 MG/M2, CYCLIC (TWO DOSES AT ONE-WEEK INTERVALS WITH EVERY OTHER COURSE OF CTX)
     Dates: start: 1974
  7. ADRIAMYCIN [Suspect]
     Active Substance: DOXORUBICIN HYDROCHLORIDE
     Indication: ALVEOLAR RHABDOMYOSARCOMA
     Dosage: 60 MG/M2, CYCLIC (ON DAY 1)
     Dates: start: 1974
  8. ADRIAMYCIN [Suspect]
     Active Substance: DOXORUBICIN HYDROCHLORIDE
     Dosage: 375 MG, UNK
     Dates: start: 1974, end: 1974
  9. PENTAMIDINE [Concomitant]
     Active Substance: PENTAMIDINE
     Indication: PNEUMOCYSTIS JIROVECII PNEUMONIA
     Dosage: UNK
     Route: 030
     Dates: start: 197408

REACTIONS (2)
  - Second primary malignancy [Unknown]
  - Acute myeloid leukaemia [Unknown]

NARRATIVE: CASE EVENT DATE: 1976
